FAERS Safety Report 9093435 (Version 1)
Quarter: 2013Q1

REPORT INFORMATION
  Report Type: Spontaneous
  Country: PR (occurrence: PR)
  Receive Date: 20130131
  Receipt Date: 20130131
  Transmission Date: 20140127
  Serious: No
  Sender: FDA-Public Use
  Company Number: PR-ABBOTT-12P-131-1015075-00

PATIENT
  Age: 64 Year
  Sex: Female
  Weight: 70.82 kg

DRUGS (14)
  1. HUMIRA [Suspect]
     Indication: PRODUCT USED FOR UNKNOWN INDICATION
     Route: 058
     Dates: start: 201210
  2. SULINDAC [Concomitant]
     Indication: RHEUMATOID ARTHRITIS
     Route: 048
  3. METHOTREXATE 2.5 MG [Concomitant]
     Indication: RHEUMATOID ARTHRITIS
     Route: 048
  4. INSULIN [Concomitant]
     Indication: DIABETES MELLITUS
     Dosage: 50 U AM/30 U PM
     Route: 058
  5. ADVAIR [Concomitant]
     Indication: ASTHMA
     Route: 055
  6. ALBUTEROL [Concomitant]
     Indication: ASTHMA
     Route: 055
  7. CALAN [Concomitant]
     Indication: HYPERTENSION
     Route: 048
  8. LASIX [Concomitant]
     Indication: HYPERTENSION
     Route: 048
  9. ASPIRIN [Concomitant]
     Indication: PRODUCT USED FOR UNKNOWN INDICATION
     Route: 048
  10. FINOFIBRATE [Concomitant]
     Indication: HYPERLIPIDAEMIA
     Route: 048
  11. SYNTHROID [Concomitant]
     Indication: HYPOTHYROIDISM
     Route: 048
  12. ISORDIL [Concomitant]
     Indication: CARDIOVASCULAR DISORDER
     Route: 048
  13. ZEGRID [Concomitant]
     Indication: GASTROOESOPHAGEAL REFLUX DISEASE
     Route: 048
  14. ZANTAC [Concomitant]
     Indication: GASTROOESOPHAGEAL REFLUX DISEASE
     Route: 048

REACTIONS (3)
  - Dysphonia [Not Recovered/Not Resolved]
  - Vomiting [Recovered/Resolved]
  - Diarrhoea [Recovered/Resolved]
